FAERS Safety Report 7704732-9 (Version None)
Quarter: 2011Q3

REPORT INFORMATION
  Report Type: 
  Country: None (occurrence: None)
  Receive Date: 20110823
  Receipt Date: 20110815
  Transmission Date: 20111222
  Serious: Yes (Other)
  Sender: FDA-Public Use
  Company Number: PHHY2011US74255

PATIENT
  Age: 11 Year
  Sex: Male

DRUGS (2)
  1. LEVETIRACETAM [Suspect]
     Indication: GRAND MAL CONVULSION
     Dosage: 25 MG/KG, UNK
  2. LEVETIRACETAM [Suspect]
     Dosage: 40 MG/KG, UNK

REACTIONS (7)
  - BALANCE DISORDER [None]
  - DRUG INEFFECTIVE [None]
  - CONVULSION [None]
  - HEAD DISCOMFORT [None]
  - TREMOR [None]
  - KNEE DEFORMITY [None]
  - MYOCLONUS [None]
